FAERS Safety Report 8571527-6 (Version None)
Quarter: 2012Q3

REPORT INFORMATION
  Report Type: 
  Country: None (occurrence: None)
  Receive Date: 20120724
  Receipt Date: 20120712
  Transmission Date: 20120928
  Serious: Yes (Hospitalization, Other)
  Sender: FDA-Public Use
  Company Number: AUR-APL-2011-04421

PATIENT
  Age: 60 Year
  Sex: Female

DRUGS (4)
  1. METOPROLOL TARTRATE [Concomitant]
  2. ASPIRIN [Concomitant]
  3. AMLODIPINE [Suspect]
     Indication: PRODUCT USED FOR UNKNOWN INDICATION
     Dosage: 20 MG (10 MG, 2 IN 1 D),PER ORAL
     Route: 048
  4. NIFEDIPINE [Concomitant]

REACTIONS (8)
  - LACTIC ACIDOSIS [None]
  - INTESTINAL OBSTRUCTION [None]
  - ILEUS PARALYTIC [None]
  - SHOCK [None]
  - TOXICITY TO VARIOUS AGENTS [None]
  - SELF-MEDICATION [None]
  - ANION GAP INCREASED [None]
  - RESPIRATORY FAILURE [None]
